FAERS Safety Report 8016659-6 (Version None)
Quarter: 2012Q1

REPORT INFORMATION
  Report Type: 
  Country: None (occurrence: None)
  Receive Date: 20120102
  Receipt Date: 20111222
  Transmission Date: 20120608
  Serious: Yes (Other)
  Sender: FDA-Public Use
  Company Number: US-BRISTOL-MYERS SQUIBB COMPANY-16311201

PATIENT
  Age: 9 Year
  Sex: Female
  Weight: 49 kg

DRUGS (3)
  1. GUANFACINE HYDROCHLORIDE [Concomitant]
  2. ABILIFY [Suspect]
     Indication: ATTENTION DEFICIT/HYPERACTIVITY DISORDER
     Dosage: STARTED 2-3YRS AGO AND INTERRUPTED,RESTAT IN OCT2011
  3. ABILIFY [Suspect]
     Indication: BIPOLAR DISORDER
     Dosage: STARTED 2-3YRS AGO AND INTERRUPTED,RESTAT IN OCT2011

REACTIONS (2)
  - WITHDRAWAL SYNDROME [None]
  - WEIGHT INCREASED [None]
